FAERS Safety Report 10569580 (Version 1)
Quarter: 2014Q4

REPORT INFORMATION
  Report Type: Spontaneous
  Country: NZ (occurrence: NZ)
  Receive Date: 20141106
  Receipt Date: 20141106
  Transmission Date: 20150529
  Serious: Yes (Death)
  Sender: FDA-Public Use
  Company Number: PHHY2014NZ143613

PATIENT
  Age: 49 Year
  Sex: Male

DRUGS (2)
  1. PANADOL [Suspect]
     Active Substance: ACETAMINOPHEN
     Indication: PRODUCT USED FOR UNKNOWN INDICATION
     Dosage: UNK UKN, UNK
     Route: 065
  2. VOLTAREN [Suspect]
     Active Substance: DICLOFENAC SODIUM
     Indication: PRODUCT USED FOR UNKNOWN INDICATION
     Dosage: UNK UKN, UNK
     Route: 065

REACTIONS (14)
  - Cold sweat [Unknown]
  - Death [Fatal]
  - Reflux gastritis [Unknown]
  - Pain in extremity [Unknown]
  - Dizziness [Unknown]
  - General physical health deterioration [Unknown]
  - Limb discomfort [Unknown]
  - Stress [Unknown]
  - Blood disorder [Unknown]
  - Pulse abnormal [Unknown]
  - Muscle strain [Unknown]
  - Nasopharyngitis [Unknown]
  - Anxiety [Unknown]
  - Dyspnoea [Unknown]
